FAERS Safety Report 20100055 (Version 1)
Quarter: 2021Q4

REPORT INFORMATION
  Report Type: Spontaneous
  Country: BR (occurrence: BR)
  Receive Date: 20211123
  Receipt Date: 20211123
  Transmission Date: 20220303
  Serious: Yes (Hospitalization)
  Sender: FDA-Public Use
  Company Number: BR-NOVOPROD-866809

PATIENT
  Age: 6 Year
  Sex: Male

DRUGS (4)
  1. NORDITROPIN [Suspect]
     Active Substance: SOMATROPIN
     Dosage: 1 UNK
     Route: 065
     Dates: start: 201303
  2. NORDITROPIN [Suspect]
     Active Substance: SOMATROPIN
     Indication: Growth hormone deficiency
     Dosage: UNK
     Route: 065
  3. NORDITROPIN [Suspect]
     Active Substance: SOMATROPIN
     Dosage: 1 UNK
     Route: 065
     Dates: start: 201503
  4. NORDITROPIN [Suspect]
     Active Substance: SOMATROPIN
     Dosage: 0.9 UNK
     Route: 065
     Dates: start: 201403

REACTIONS (6)
  - Asthmatic crisis [Unknown]
  - Headache [Unknown]
  - Astigmatism [Unknown]
  - Acne [Unknown]
  - Precocious puberty [Unknown]
  - Insulin-like growth factor increased [Unknown]

NARRATIVE: CASE EVENT DATE: 20120201
